FAERS Safety Report 4611399-5 (Version None)
Quarter: 2005Q2

REPORT INFORMATION
  Report Type: 
  Country: None (occurrence: None)
  Receive Date: 20050311
  Receipt Date: 20041223
  Transmission Date: 20051028
  Serious: No
  Sender: FDA-Public Use
  Company Number: 2004-BP-14537BP

PATIENT
  Sex: Female

DRUGS (8)
  1. SPIRIVA [Suspect]
     Indication: CHRONIC OBSTRUCTIVE PULMONARY DISEASE
     Dosage: 18 MCG (18 MCG), IH
     Route: 055
     Dates: start: 20040701
  2. SPIRIVA [Suspect]
     Indication: EMPHYSEMA
     Dosage: 18 MCG (18 MCG), IH
     Route: 055
     Dates: start: 20040701
  3. SPIRIVA [Suspect]
     Indication: SARCOIDOSIS
     Dosage: 18 MCG (18 MCG), IH
     Route: 055
     Dates: start: 20040701
  4. SPIRIVA [Suspect]
  5. FORADIL [Concomitant]
  6. XOPENEX [Concomitant]
  7. VERAPAMIL [Concomitant]
  8. DIGOXIN [Concomitant]

REACTIONS (2)
  - DRY MOUTH [None]
  - DYSPNOEA EXACERBATED [None]
